FAERS Safety Report 4550694-5 (Version None)
Quarter: 2004Q4

REPORT INFORMATION
  Report Type: 
  Country: None (occurrence: None)
  Receive Date: 20041217
  Receipt Date: 20041019
  Transmission Date: 20050328
  Serious: No
  Sender: FDA-Public Use
  Company Number: 2004BP-10639BP(0)

PATIENT
  Age: 77 Year
  Sex: Female

DRUGS (7)
  1. SPIRIVA [Suspect]
     Dosage: 18 MCG (18 MCG) IH
     Route: 025
     Dates: start: 20041014, end: 20041017
  2. CALCIUM GLUCONATE [Concomitant]
  3. MAGNESIUM [Concomitant]
  4. ZINC [Concomitant]
  5. VITAMIN B12 (CYANCOBALAMIN) [Concomitant]
  6. VITAMIN D [Concomitant]
  7. TUMS (CALCIUM CARBONATE) [Concomitant]

REACTIONS (3)
  - ARTHRALGIA [None]
  - LETHARGY [None]
  - PAIN IN EXTREMITY [None]
